FAERS Safety Report 20442360 (Version 2)
Quarter: 2022Q1

REPORT INFORMATION
  Report Type: Spontaneous
  Country: US (occurrence: US)
  Receive Date: 20220208
  Receipt Date: 20220216
  Transmission Date: 20220423
  Serious: No
  Sender: FDA-Public Use
  Company Number: US-PFIZER INC-202200036861

PATIENT
  Age: 51 Year
  Sex: Female

DRUGS (2)
  1. NICOTROL [Suspect]
     Active Substance: NICOTINE
     Indication: Smoking cessation therapy
     Dosage: 10 MG
  2. NICOTROL [Suspect]
     Active Substance: NICOTINE
     Dosage: 10 MG

REACTIONS (3)
  - Poor quality product administered [Unknown]
  - Product quality issue [Unknown]
  - Product packaging quantity issue [Unknown]
